FAERS Safety Report 6867066-0 (Version None)
Quarter: 2010Q3

REPORT INFORMATION
  Report Type: 
  Country: None (occurrence: None)
  Receive Date: 20100722
  Receipt Date: 20100628
  Transmission Date: 20110219
  Serious: Yes (Hospitalization)
  Sender: FDA-Public Use
  Company Number: A0796456A

PATIENT
  Age: 46 Year
  Sex: Female
  Weight: 124.1 kg

DRUGS (1)
  1. AVANDIA [Suspect]
     Dosage: 4MG PER DAY
     Route: 048
     Dates: start: 20010101, end: 20080101

REACTIONS (5)
  - ANGINA PECTORIS [None]
  - CEREBROVASCULAR ACCIDENT [None]
  - FOOT FRACTURE [None]
  - MENTAL IMPAIRMENT [None]
  - TRANSIENT ISCHAEMIC ATTACK [None]
